FAERS Safety Report 9137651 (Version 2)
Quarter: 2013Q2

REPORT INFORMATION
  Report Type: Spontaneous
  Country: BR (occurrence: BR)
  Receive Date: 20130304
  Receipt Date: 20130405
  Transmission Date: 20140414
  Serious: Yes (Hospitalization, Other)
  Sender: FDA-Public Use
  Company Number: BR-ASTRAZENECA-2013SE12831

PATIENT
  Age: 332 Month
  Sex: Female

DRUGS (5)
  1. SEROQUEL [Suspect]
     Indication: BIPOLAR DISORDER
     Route: 048
  2. SEROQUEL [Interacting]
     Indication: BIPOLAR DISORDER
     Route: 048
     Dates: start: 2007
  3. SEROQUEL [Interacting]
     Indication: BIPOLAR DISORDER
     Dosage: TOOK SOME SEROQUEL TABLETS (OVER THAN RECOMMENDED)
     Route: 048
  4. SEROQUEL [Interacting]
     Indication: BIPOLAR DISORDER
     Route: 048
  5. ALCOHOL [Interacting]
     Dosage: ONE BOTTLE OF WINE

REACTIONS (2)
  - Alcohol interaction [Recovered/Resolved]
  - Intentional drug misuse [Recovered/Resolved]
